FAERS Safety Report 9183000 (Version 1)
Quarter: 2013Q1

REPORT INFORMATION
  Report Type: Spontaneous
  Country: US (occurrence: US)
  Receive Date: 20130322
  Receipt Date: 20130322
  Transmission Date: 20140127
  Serious: Yes (Life-Threatening, Hospitalization)
  Sender: FDA-Public Use
  Company Number: US-BRISTOL-MYERS SQUIBB COMPANY-16981912

PATIENT
  Age: 59 Year
  Sex: Male

DRUGS (3)
  1. ERBITUX SOLN FOR INF [Suspect]
     Indication: HEAD AND NECK CANCER
     Dosage: DOSE:692MG(400MG/M2) LOADING THEN 433(250MG/M2)WKLY
     Route: 042
     Dates: start: 20120910, end: 20120910
  2. IBUPROFEN [Concomitant]
  3. LISINOPRIL [Concomitant]

REACTIONS (1)
  - Infusion related reaction [Unknown]
